FAERS Safety Report 9171739 (Version 1)
Quarter: 2013Q1

REPORT INFORMATION
  Report Type: Spontaneous
  Country: DE (occurrence: None)
  Receive Date: 20130313
  Receipt Date: 20130313
  Transmission Date: 20140127
  Serious: Yes (Hospitalization)
  Sender: FDA-Public Use
  Company Number: 1620288

PATIENT
  Age: 82 Year
  Sex: Male
  Weight: 55.7 kg

DRUGS (1)
  1. GEMCITABINE  HYDROCHLORIDE [Suspect]
     Indication: PANCREATIC CARCINOMA
     Dosage: UNKNOWN  ( UNKNOWN )?INTRAVENOUS  (NOT  OTHERWISE SPECIFIED)?UNKNOWN  -  UNKNOWN  ( 62  DAYS)
     Route: 042

REACTIONS (3)
  - Alveolitis [None]
  - Pneumonia [None]
  - Pulmonary toxicity [None]
